FAERS Safety Report 7833787-6 (Version None)
Quarter: 2011Q4

REPORT INFORMATION
  Report Type: 
  Country: None (occurrence: None)
  Receive Date: 20111024
  Receipt Date: 20111021
  Transmission Date: 20120403
  Serious: Yes (Other)
  Sender: FDA-Public Use
  Company Number: GB-ROCHE-770330

PATIENT
  Sex: Female
  Weight: 60 kg

DRUGS (5)
  1. PEG-INTERFERON ALFA 2A [Suspect]
     Indication: HEPATITIS C
     Dosage: TEMPORARILY INTERRUPTED.
     Route: 058
     Dates: start: 20100817, end: 20110405
  2. COPEGUS [Suspect]
     Route: 048
  3. PEG-INTERFERON ALFA 2A [Suspect]
     Route: 058
  4. COPEGUS [Suspect]
     Indication: HEPATITIS C
     Dosage: TEMPORARILY INTERRUPTED.
     Route: 048
     Dates: start: 20100817, end: 20110407
  5. TELAPREVIR [Suspect]
     Indication: HEPATITIS C
     Route: 048
     Dates: start: 20100817, end: 20101109

REACTIONS (1)
  - DEPRESSION [None]
